FAERS Safety Report 5647062-1 (Version None)
Quarter: 2008Q1

REPORT INFORMATION
  Report Type: 
  Country: None (occurrence: None)
  Receive Date: 20080303
  Receipt Date: 20080221
  Transmission Date: 20080703
  Serious: Yes (Other)
  Sender: FDA-Public Use
  Company Number: AU-JNJFOC-20070602676

PATIENT
  Sex: Male
  Weight: 101 kg

DRUGS (23)
  1. TMC114 [Suspect]
     Route: 048
  2. TMC114 [Suspect]
     Indication: HIV INFECTION
     Dosage: IN THE MRONING AND EVENING
     Route: 048
  3. RITONAVIR [Suspect]
     Indication: HIV INFECTION
     Dosage: IN THE MORNING AND EVENING
     Route: 048
  4. ASPIRIN [Suspect]
     Indication: PROPHYLAXIS
     Route: 065
  5. ABACAVIR [Concomitant]
     Indication: HIV INFECTION
     Route: 048
  6. TENOFOVIR [Concomitant]
     Indication: HIV INFECTION
     Route: 048
  7. LAMIVUDINE [Concomitant]
     Indication: HIV INFECTION
     Route: 048
  8. KIVEXA [Concomitant]
     Indication: HIV INFECTION
     Route: 065
  9. DOSTINEX [Concomitant]
     Indication: BLOOD PROLACTIN INCREASED
     Route: 065
  10. VALACYCLOVIR [Concomitant]
     Indication: HERPES SIMPLEX
     Route: 065
  11. LYRICA [Concomitant]
     Indication: NEUROPATHY PERIPHERAL
     Route: 065
  12. EPILIM [Concomitant]
     Indication: NEUROPATHY PERIPHERAL
     Route: 065
  13. PANTOPRAZOLE SODIUM [Concomitant]
     Indication: GASTROOESOPHAGEAL REFLUX DISEASE
     Route: 065
  14. ATACAND HCT [Concomitant]
     Indication: HYPERTENSION
     Route: 065
  15. MINIPRESS [Concomitant]
     Indication: HYPERTENSION
     Route: 065
  16. ATENOLOL [Concomitant]
     Indication: HYPERTENSION
     Route: 065
  17. PENTAMIDINE ISETHIONATE [Concomitant]
     Indication: ANTIFUNGAL PROPHYLAXIS
     Route: 055
  18. ALDARA [Concomitant]
     Route: 061
  19. PANTOPRAZOLE [Concomitant]
     Route: 065
  20. XANAX [Concomitant]
     Route: 065
  21. DOMPERIDONE [Concomitant]
     Route: 065
  22. OXIS TURBUHALER [Concomitant]
     Route: 055
  23. RHINOCORT [Concomitant]
     Route: 055

REACTIONS (1)
  - BRAIN STEM HAEMORRHAGE [None]
